FAERS Safety Report 6536863-3 (Version None)
Quarter: 2010Q1

REPORT INFORMATION
  Report Type: 
  Country: None (occurrence: None)
  Receive Date: 20100113
  Receipt Date: 20100104
  Transmission Date: 20100710
  Serious: Yes (Hospitalization, Other)
  Sender: FDA-Public Use
  Company Number: DE-ABBOTT-10P-062-0617558-00

PATIENT
  Age: 72 Year
  Sex: Female

DRUGS (12)
  1. HUMIRA [Suspect]
     Indication: PSORIASIS
     Dates: end: 20090601
  2. GLUCOCORTICOIDS [Concomitant]
     Indication: DRUG USE FOR UNKNOWN INDICATION
  3. DIGITOXIN INJ [Concomitant]
     Indication: DRUG USE FOR UNKNOWN INDICATION
     Dosage: OPD
  4. BELOC ZOK [Concomitant]
     Indication: DRUG USE FOR UNKNOWN INDICATION
  5. DELMUNO RETARD [Concomitant]
     Indication: DRUG USE FOR UNKNOWN INDICATION
     Dosage: 5/5MG TWICE DAILY
  6. ALDACTONE [Concomitant]
     Indication: DRUG USE FOR UNKNOWN INDICATION
     Dosage: GLAZED TABLETS OPD
  7. ALLOPURINOL [Concomitant]
     Indication: DRUG USE FOR UNKNOWN INDICATION
     Dosage: 1/2 TABLET 3001A ODD
  8. NIFEDIPINE [Concomitant]
     Indication: DRUG USE FOR UNKNOWN INDICATION
     Dosage: 20MG/ML DROPS IF REQUIRED
  9. INEGY [Concomitant]
     Indication: DRUG USE FOR UNKNOWN INDICATION
     Dosage: 10MG/10MG OPD
  10. RIFINAH [Concomitant]
     Indication: DRUG USE FOR UNKNOWN INDICATION
     Dosage: GLAZED TABLETS
  11. VITAMINE B DUO [Concomitant]
     Indication: DRUG USE FOR UNKNOWN INDICATION
  12. VIGANTOLETTEN [Concomitant]
     Indication: DRUG USE FOR UNKNOWN INDICATION
     Dosage: OPD

REACTIONS (5)
  - ASCITES [None]
  - PERITONITIS [None]
  - PLEURISY [None]
  - TUBERCULOSIS [None]
  - TUBERCULOSIS GASTROINTESTINAL [None]
